FAERS Safety Report 4413542-X (Version None)
Quarter: 2004Q2

REPORT INFORMATION
  Report Type: 
  Country: None (occurrence: None)
  Receive Date: 20040630
  Receipt Date: 20040309
  Transmission Date: 20050107
  Serious: No
  Sender: FDA-Public Use
  Company Number: 04P-163-0252688-00

PATIENT
  Age: 54 Year
  Sex: Female
  Weight: 113.3993 kg

DRUGS (5)
  1. HUMIRA [Suspect]
     Indication: RHEUMATOID ARTHRITIS
     Dosage: 40 MG, 1 IN 2 WK, SUBCUTANEOUS (SEE IMAGE)
     Route: 058
     Dates: start: 20031201, end: 20031201
  2. HUMIRA [Suspect]
     Indication: RHEUMATOID ARTHRITIS
     Dosage: 40 MG, 1 IN 2 WK, SUBCUTANEOUS (SEE IMAGE)
     Route: 058
     Dates: start: 20040101, end: 20040101
  3. DIOVAN [Concomitant]
  4. UDRAMIL [Concomitant]
  5. SECTRAL [Concomitant]

REACTIONS (4)
  - CHILLS [None]
  - PYREXIA [None]
  - TREMOR [None]
  - UPPER RESPIRATORY TRACT INFECTION [None]
